FAERS Safety Report 9803336 (Version 2)
Quarter: 2014Q2

REPORT INFORMATION
  Report Type: Report from Study
  Country: CA (occurrence: CA)
  Receive Date: 20140108
  Receipt Date: 20140429
  Transmission Date: 20141212
  Serious: Yes (Other)
  Sender: FDA-Public Use
  Company Number: PHHY2014CA001497

PATIENT
  Age: 19 Year
  Sex: Male

DRUGS (1)
  1. ACLASTA [Suspect]
     Indication: OSTEOPOROSIS
     Dosage: UNK UKN, UNK
     Route: 042
     Dates: start: 20130410

REACTIONS (4)
  - Diabetes mellitus [Unknown]
  - Nephrolithiasis [Unknown]
  - Poor venous access [Unknown]
  - Obesity [Unknown]
